FAERS Safety Report 15738809 (Version 2)
Quarter: 2018Q4

REPORT INFORMATION
  Report Type: Report from Study
  Country: CA (occurrence: CA)
  Receive Date: 20181219
  Receipt Date: 20181228
  Transmission Date: 20190205
  Serious: Yes (Death, Other)
  Sender: FDA-Public Use
  Company Number: CA-TAKEDA-2018TUS035981

PATIENT
  Age: 69 Year
  Sex: Female

DRUGS (1)
  1. VORTIOXETINE. [Suspect]
     Active Substance: VORTIOXETINE
     Indication: DEPRESSION
     Dosage: 10 MG, UNK
     Route: 065

REACTIONS (2)
  - Chronic obstructive pulmonary disease [Fatal]
  - Pancreatic carcinoma [Fatal]
